FAERS Safety Report 22110884 (Version 1)
Quarter: 2023Q1

REPORT INFORMATION
  Report Type: Spontaneous
  Country: CN (occurrence: CN)
  Receive Date: 20230317
  Receipt Date: 20230317
  Transmission Date: 20230417
  Serious: Yes (Other)
  Sender: FDA-Public Use
  Company Number: CN-SCALL-2023-CN-000131

PATIENT
  Age: 56 Year
  Sex: Male
  Weight: 69 kg

DRUGS (4)
  1. RABEPRAZOLE SODIUM [Suspect]
     Active Substance: RABEPRAZOLE SODIUM
     Indication: Helicobacter infection
     Dosage: 10 MG,12 HR
     Route: 048
     Dates: start: 20230214, end: 20230220
  2. FURAZOLIDONE [Suspect]
     Active Substance: FURAZOLIDONE
     Dosage: 0.1 GM,12 HR
     Route: 048
     Dates: start: 20230214, end: 20230220
  3. BISMUTH [Concomitant]
     Active Substance: BISMUTH
     Dosage: 0.4 GM,12 HR
     Route: 048
     Dates: start: 20230214, end: 20230220
  4. AMOXICILLIN [Suspect]
     Active Substance: AMOXICILLIN
     Dosage: 1 GM, 12 HR
     Route: 048
     Dates: start: 20230214, end: 20230220

REACTIONS (1)
  - Rash pruritic [Recovering/Resolving]

NARRATIVE: CASE EVENT DATE: 20230219
